FAERS Safety Report 5309040-1 (Version None)
Quarter: 2007Q2

REPORT INFORMATION
  Report Type: 
  Country: None (occurrence: None)
  Receive Date: 20070426
  Receipt Date: 20070419
  Transmission Date: 20071010
  Serious: Yes (Life-Threatening, Hospitalization, Disabling)
  Sender: FDA-Public Use
  Company Number: US-GENENTECH-240177

PATIENT
  Sex: Female
  Weight: 50.34 kg

DRUGS (5)
  1. BEVACIZUMAB [Suspect]
     Indication: BREAST CANCER METASTATIC
     Dosage: 879 MG, Q3W
     Route: 042
     Dates: start: 20060117, end: 20070322
  2. XELODA [Suspect]
     Indication: BREAST CANCER METASTATIC
     Dosage: 3300 MG, UNK
     Dates: start: 20060117, end: 20060523
  3. XELODA [Suspect]
     Dosage: 2500 MG, UNK
     Dates: start: 20060117, end: 20060527
  4. XELODA [Suspect]
     Dosage: 1000 MG, UNK
     Dates: start: 20060117, end: 20060527
  5. ABRAXANE [Suspect]
     Indication: BREAST CANCER METASTATIC
     Dosage: 152 MG, UNK
     Dates: start: 20060706, end: 20070307

REACTIONS (8)
  - ASCITES [None]
  - COMA [None]
  - GAIT DISTURBANCE [None]
  - HYPERBILIRUBINAEMIA [None]
  - LETHARGY [None]
  - NUCLEAR MAGNETIC RESONANCE IMAGING BRAIN ABNORMAL [None]
  - SPEECH DISORDER [None]
  - SPLENOMEGALY [None]
